FAERS Safety Report 13953191 (Version 1)
Quarter: 2017Q3

REPORT INFORMATION
  Report Type: Spontaneous
  Country: NO (occurrence: NO)
  Receive Date: 20170911
  Receipt Date: 20170911
  Transmission Date: 20171128
  Serious: Yes (Other)
  Sender: FDA-Public Use
  Company Number: NO-ORION CORPORATION ORION PHARMA-17_00002602

PATIENT
  Sex: Female

DRUGS (7)
  1. CIMZIA [Suspect]
     Active Substance: CERTOLIZUMAB PEGOL
     Indication: RHEUMATOID ARTHRITIS
     Route: 065
     Dates: start: 20151210
  2. CIRCADIN [Concomitant]
     Active Substance: MELATONIN
     Route: 065
  3. ALENDROBELL [Concomitant]
     Active Substance: ALENDRONATE SODIUM
     Route: 065
     Dates: start: 201606, end: 20170322
  4. SELO-ZOK [Concomitant]
     Indication: HYPERTENSION
     Route: 065
     Dates: start: 2015
  5. ALENDROBELL [Concomitant]
     Active Substance: ALENDRONATE SODIUM
     Indication: OSTEOPOROSIS
     Route: 065
  6. METHOTREXATE (TRADE NAME UNKNOWN) [Suspect]
     Active Substance: METHOTREXATE
     Indication: RHEUMATOID ARTHRITIS
     Route: 065
     Dates: start: 20111130, end: 20170310
  7. PREDNISOLON [Suspect]
     Active Substance: PREDNISOLONE
     Indication: RHEUMATOID ARTHRITIS
     Route: 065
     Dates: start: 20111130

REACTIONS (3)
  - Lip blister [Unknown]
  - Pneumonia [Unknown]
  - Tongue blistering [Unknown]

NARRATIVE: CASE EVENT DATE: 20170101
